FAERS Safety Report 15301256 (Version 1)
Quarter: 2018Q4

REPORT INFORMATION
  Report Type: Report from Study
  Country: ZA (occurrence: ZA)
  Receive Date: 20180821
  Receipt Date: 20180821
  Transmission Date: 20190204
  Serious: Yes (Other)
  Sender: FDA-Public Use
  Company Number: ZA-PFIZER INC-2018334318

PATIENT
  Age: 25 Year
  Sex: Female

DRUGS (11)
  1. CLOFAZIMINE [Suspect]
     Active Substance: CLOFAZIMINE
     Indication: TUBERCULOSIS
     Dosage: 100 MG, 1X/DAY
     Route: 048
     Dates: start: 20171130, end: 20180725
  2. FTC [Concomitant]
     Active Substance: EMTRICITABINE
  3. LINEZOLID. [Suspect]
     Active Substance: LINEZOLID
     Indication: TUBERCULOSIS
     Dosage: 600 MG, 1X/DAY
     Route: 048
     Dates: start: 20180530, end: 20180725
  4. BEDAQUILINE [Suspect]
     Active Substance: BEDAQUILINE
     Indication: TUBERCULOSIS
     Dosage: 200 MG, TIW (3 XWEEK)
     Route: 048
     Dates: start: 20180530, end: 20180725
  5. ELTROXIN [Concomitant]
     Active Substance: LEVOTHYROXINE
  6. PAS [Suspect]
     Active Substance: AMINOSALICYLIC ACID
     Indication: TUBERCULOSIS
     Dosage: 8 G, 1X/DAY
     Route: 048
     Dates: start: 20180205, end: 20180725
  7. PYRIDOXINE [Concomitant]
     Active Substance: PYRIDOXINE
  8. TERIZIDONE [Suspect]
     Active Substance: TERIZIDONE
     Indication: TUBERCULOSIS
     Dosage: 500 MG, 1X/DAY
     Route: 048
     Dates: start: 20180205, end: 20180725
  9. ALUVIA [Concomitant]
     Active Substance: LOPINAVIR\RITONAVIR
  10. DELAMANID [Suspect]
     Active Substance: DELAMANID
     Indication: TUBERCULOSIS
     Dosage: 100 MG, 2X/DAY
     Route: 048
     Dates: start: 20180530, end: 20180725
  11. TDF [Concomitant]
     Active Substance: DILOXANIDE FUROATE\TINIDAZOLE

REACTIONS (2)
  - Anaemia [Recovering/Resolving]
  - Drug-induced liver injury [Recovering/Resolving]

NARRATIVE: CASE EVENT DATE: 20180725
